FAERS Safety Report 6808379-8 (Version None)
Quarter: 2010Q2

REPORT INFORMATION
  Report Type: 
  Country: None (occurrence: None)
  Receive Date: 20100629
  Receipt Date: 20090707
  Transmission Date: 20101027
  Serious: No
  Sender: FDA-Public Use
  Company Number: US-PFIZER INC-2009219618

PATIENT
  Sex: Male
  Weight: 95.3 kg

DRUGS (12)
  1. VIAGRA [Suspect]
     Indication: ERECTILE DYSFUNCTION
     Dosage: UNK
  2. CAVERJECT [Suspect]
     Dosage: 10 UG, UNK
  3. LANTUS [Concomitant]
     Dosage: UNK
  4. TAMSULOSIN [Concomitant]
     Dosage: UNK
  5. HYDROCHLOROTHIAZIDE [Concomitant]
     Dosage: UNK
  6. COZAAR [Concomitant]
     Dosage: UNK
  7. LIPITOR [Concomitant]
  8. AMLODIPINE BESILATE [Concomitant]
     Dosage: UNK
  9. METOPROLOL TARTRATE [Concomitant]
     Dosage: UNK
  10. XALATAN [Concomitant]
     Dosage: UNK
  11. HUMALOG [Concomitant]
     Dosage: UNK
  12. PRAVASTATIN [Concomitant]
     Dosage: UNK

REACTIONS (2)
  - DRUG EFFECT DECREASED [None]
  - ERECTILE DYSFUNCTION [None]
